FAERS Safety Report 11876533 (Version 1)
Quarter: 2015Q4

REPORT INFORMATION
  Report Type: Spontaneous
  Country: CN (occurrence: CN)
  Receive Date: 20151229
  Receipt Date: 20151229
  Transmission Date: 20160305
  Serious: Yes (Other)
  Sender: FDA-Public Use
  Company Number: CN-JNJFOC-20151219438

PATIENT

DRUGS (5)
  1. RISPERIDONE. [Suspect]
     Active Substance: RISPERIDONE
     Indication: SCHIZOPHRENIA
     Route: 065
  2. QUETIAPINE [Suspect]
     Active Substance: QUETIAPINE
     Indication: SCHIZOPHRENIA
     Route: 065
  3. CLOZAPINE. [Suspect]
     Active Substance: CLOZAPINE
     Indication: SCHIZOPHRENIA
     Route: 065
  4. ARIPIPRAZOLE. [Suspect]
     Active Substance: ARIPIPRAZOLE
     Indication: SCHIZOPHRENIA
     Route: 065
  5. ZIPRASIDONE. [Suspect]
     Active Substance: ZIPRASIDONE
     Indication: SCHIZOPHRENIA
     Route: 065

REACTIONS (36)
  - Myocardial ischaemia [Unknown]
  - Decreased activity [Unknown]
  - Vision blurred [Unknown]
  - Constipation [Unknown]
  - Rash [Unknown]
  - Micturition disorder [Unknown]
  - Tremor [Unknown]
  - Tachycardia [Unknown]
  - Palpitations [Unknown]
  - Myotonia [Unknown]
  - Dry mouth [Unknown]
  - Vomiting [Unknown]
  - Electrocardiogram abnormal [Unknown]
  - Menstrual disorder [Unknown]
  - Salivary hypersecretion [Unknown]
  - White blood cell count decreased [Unknown]
  - Confusional state [Unknown]
  - Depression [Unknown]
  - Psychomotor hyperactivity [Unknown]
  - Insomnia [Unknown]
  - Nasal congestion [Unknown]
  - Diarrhoea [Unknown]
  - Galactorrhoea [Unknown]
  - Hyperhidrosis [Unknown]
  - Dizziness [Unknown]
  - Adverse event [Unknown]
  - Somnolence [Unknown]
  - Blood glucose increased [Unknown]
  - Akathisia [Unknown]
  - Nausea [Unknown]
  - Orthostatic hypotension [Unknown]
  - Headache [Unknown]
  - Blood test abnormal [Unknown]
  - Agitation [Unknown]
  - Liver function test abnormal [Unknown]
  - Weight increased [Unknown]
